FAERS Safety Report 23552066 (Version 1)
Quarter: 2024Q1

REPORT INFORMATION
  Report Type: Spontaneous
  Country: GB (occurrence: GB)
  Receive Date: 20240222
  Receipt Date: 20240222
  Transmission Date: 20240410
  Serious: Yes (Life-Threatening, Other)
  Sender: FDA-Public Use
  Company Number: GB-MHRA-MED-202309121657384140-TRWKY

PATIENT

DRUGS (8)
  1. CETIRIZINE [Suspect]
     Active Substance: CETIRIZINE HYDROCHLORIDE
     Indication: Eczema
     Dosage: UNK
     Route: 065
     Dates: start: 2017, end: 2022
  2. OXYBUTYNIN [Suspect]
     Active Substance: OXYBUTYNIN\OXYBUTYNIN CHLORIDE
     Indication: Stress urinary incontinence
     Dosage: REDUCED TO 2.5MG TWICE A DAY
     Route: 065
     Dates: start: 20210125, end: 20220101
  3. ATORVASTATIN [Concomitant]
     Active Substance: ATORVASTATIN
     Indication: Blood cholesterol increased
     Dosage: UNK
     Route: 065
     Dates: start: 20210220
  4. BETNOVATE [Concomitant]
     Active Substance: BETAMETHASONE
     Indication: Eczema
     Dosage: UNK
     Route: 065
     Dates: start: 2005
  5. BETAMETHASONE VALERATE [Concomitant]
     Active Substance: BETAMETHASONE VALERATE
     Indication: Skin irritation
     Dosage: UNK
     Route: 065
  6. CYCLOSPORINE [Concomitant]
     Active Substance: CYCLOSPORINE
     Indication: Product used for unknown indication
     Dosage: UNK
     Route: 061
     Dates: start: 2005
  7. MOMETASONE [Concomitant]
     Active Substance: MOMETASONE
     Indication: Hypersensitivity
     Dosage: UNKNOWN
     Route: 065
  8. PARAFFIN [Concomitant]
     Active Substance: PARAFFIN
     Indication: Dry skin
     Dosage: UNK
     Route: 065

REACTIONS (7)
  - Heat stroke [Recovered/Resolved]
  - Contusion [Recovering/Resolving]
  - Delirium [Unknown]
  - Disorganised speech [Unknown]
  - Labelled drug-drug interaction medication error [Unknown]
  - Product prescribing error [Unknown]
  - Peripheral swelling [Unknown]

NARRATIVE: CASE EVENT DATE: 20210718
